FAERS Safety Report 7396531-5 (Version None)
Quarter: 2011Q2

REPORT INFORMATION
  Report Type: 
  Country: None (occurrence: None)
  Receive Date: 20110406
  Receipt Date: 20110330
  Transmission Date: 20111010
  Serious: Yes (Hospitalization, Other)
  Sender: FDA-Public Use
  Company Number: DE-BRISTOL-MYERS SQUIBB COMPANY-15645229

PATIENT
  Age: 53 Year
  Sex: Female
  Weight: 51 kg

DRUGS (1)
  1. IPILIMUMAB [Suspect]
     Indication: MALIGNANT MELANOMA
     Dosage: VIAL # 221762
     Route: 042
     Dates: start: 20110315, end: 20110315

REACTIONS (4)
  - PNEUMONIA PRIMARY ATYPICAL [None]
  - COUGH [None]
  - FATIGUE [None]
  - HEADACHE [None]
